FAERS Safety Report 5917102-0 (Version None)
Quarter: 2008Q4

REPORT INFORMATION
  Report Type: 
  Country: None (occurrence: None)
  Receive Date: 20081014
  Receipt Date: 20081007
  Transmission Date: 20090506
  Serious: Yes (Hospitalization, Other)
  Sender: FDA-Public Use
  Company Number: IL-ABBOTT-08P-082-0475640-00

PATIENT
  Age: 34 Year
  Sex: Male
  Weight: 59 kg

DRUGS (2)
  1. KALETRA [Suspect]
     Indication: HIV INFECTION
     Dates: start: 20080427
  2. TRUVADA [Concomitant]
     Indication: HIV INFECTION
     Dates: start: 20080427

REACTIONS (4)
  - ABSCESS [None]
  - CEREBRAL HAEMORRHAGE [None]
  - CONVULSION [None]
  - HEAD INJURY [None]
